FAERS Safety Report 5341280-8 (Version None)
Quarter: 2007Q2

REPORT INFORMATION
  Report Type: 
  Country: None (occurrence: None)
  Receive Date: 20070404
  Receipt Date: 20070125
  Transmission Date: 20071010
  Serious: Yes (Other)
  Sender: FDA-Public Use
  Company Number: 2007006695

PATIENT
  Sex: Female

DRUGS (2)
  1. GEODON [Suspect]
     Indication: BIPOLAR DISORDER
  2. LEXAPRO [Suspect]
     Indication: BIPOLAR DISORDER

REACTIONS (2)
  - EXTRAPYRAMIDAL DISORDER [None]
  - TARDIVE DYSKINESIA [None]
